FAERS Safety Report 6863152-X (Version None)
Quarter: 2010Q3

REPORT INFORMATION
  Report Type: 
  Country: None (occurrence: None)
  Receive Date: 20100721
  Receipt Date: 20100706
  Transmission Date: 20110219
  Serious: Yes (Hospitalization)
  Sender: FDA-Public Use
  Company Number: GB-JNJFOC-20100704937

PATIENT
  Sex: Female
  Weight: 40.2 kg

DRUGS (10)
  1. INFLIXIMAB [Suspect]
     Indication: INFLAMMATORY BOWEL DISEASE
     Route: 042
  2. HUMIRA [Suspect]
     Indication: INFLAMMATORY BOWEL DISEASE
  3. AZATHIOPRINE [Concomitant]
  4. METRONIDAZOLE [Concomitant]
  5. GENTAMICIN [Concomitant]
  6. ANTIBIOTIC [Concomitant]
  7. MORPHINE [Concomitant]
  8. ONDANSETRON [Concomitant]
  9. CALCICHEW [Concomitant]
  10. OMEPRAZOLE [Concomitant]

REACTIONS (1)
  - CROHN'S DISEASE [None]
